FAERS Safety Report 8439566-3 (Version None)
Quarter: 2012Q2

REPORT INFORMATION
  Report Type: 
  Country: None (occurrence: None)
  Receive Date: 20120323
  Receipt Date: 20110525
  Transmission Date: 20120825
  Serious: Yes (Other)
  Sender: FDA-Public Use
  Company Number: 163-21880-11053587

PATIENT
  Age: 59 Year
  Sex: Female

DRUGS (2)
  1. REVLIMID [Suspect]
     Indication: 5Q MINUS SYNDROME
     Dosage: 10 MG, 1 IN 1 D, PO, 5 MG, DAILY X 21 DAYS, 7 DAYS OFF, PO
     Route: 048
     Dates: start: 20110428
  2. REVLIMID [Suspect]
     Indication: 5Q MINUS SYNDROME
     Dosage: 10 MG, 1 IN 1 D, PO, 5 MG, DAILY X 21 DAYS, 7 DAYS OFF, PO
     Route: 048
     Dates: start: 20110308

REACTIONS (2)
  - LEUKOPENIA [None]
  - PANCYTOPENIA [None]
